FAERS Safety Report 9493550 (Version 2)
Quarter: 2013Q4

REPORT INFORMATION
  Report Type: Spontaneous
  Country: US (occurrence: US)
  Receive Date: 20130902
  Receipt Date: 20131029
  Transmission Date: 20140711
  Serious: No
  Sender: FDA-Public Use
  Company Number: US-PFIZER INC-2013250609

PATIENT
  Age: 61 Year
  Sex: Female
  Weight: 87.08 kg

DRUGS (6)
  1. RELPAX [Suspect]
     Indication: MIGRAINE
     Dosage: 40 MG, 1X/DAY
     Dates: start: 2013
  2. NEURONTIN [Suspect]
     Indication: MIGRAINE PROPHYLAXIS
     Dosage: UNK
  3. PRAVASTATIN [Concomitant]
     Indication: BLOOD CHOLESTEROL INCREASED
     Dosage: UNK
  4. CITALOPRAM [Concomitant]
     Indication: DEPRESSION
     Dosage: UNK
  5. WELLBUTRIN [Concomitant]
     Indication: DEPRESSION
     Dosage: UNK
  6. DICLOFENAC [Concomitant]
     Indication: ARTHRITIS
     Dosage: UNK

REACTIONS (2)
  - Drug ineffective [Unknown]
  - Off label use [Unknown]
